FAERS Safety Report 5241637-X (Version None)
Quarter: 2007Q1

REPORT INFORMATION
  Report Type: 
  Country: None (occurrence: None)
  Receive Date: 20070215
  Receipt Date: 20070215
  Transmission Date: 20070707
  Serious: Yes (Life-Threatening)
  Sender: FDA-Public Use
  Company Number: None

PATIENT
  Sex: Male
  Weight: 102 kg

DRUGS (2)
  1. METHADONE HCL [Suspect]
     Dosage: 40-60 MG PRN PO
     Route: 048
     Dates: end: 20070124
  2. XANAX [Suspect]
     Dosage: 12 MG HS PO
     Route: 048
     Dates: end: 20070124

REACTIONS (6)
  - BRADYCARDIA [None]
  - DELIRIUM [None]
  - ELECTROCARDIOGRAM QT PROLONGED [None]
  - LETHARGY [None]
  - PYREXIA [None]
  - TORSADE DE POINTES [None]
